FAERS Safety Report 11427778 (Version 1)
Quarter: 2015Q3

REPORT INFORMATION
  Report Type: Spontaneous
  Country: JP (occurrence: JP)
  Receive Date: 20150828
  Receipt Date: 20150828
  Transmission Date: 20151125
  Serious: Yes (Life-Threatening)
  Sender: FDA-Public Use
  Company Number: JP-HOSPIRA-2982250

PATIENT
  Age: 62 Year
  Sex: Male
  Weight: 49.2 kg

DRUGS (3)
  1. GEMCITABINE HYDROCHLORIDE. [Suspect]
     Active Substance: GEMCITABINE HYDROCHLORIDE
     Indication: BILE DUCT CANCER
     Route: 042
     Dates: start: 20141211, end: 20150121
  2. GEMCITABINE HYDROCHLORIDE. [Suspect]
     Active Substance: GEMCITABINE HYDROCHLORIDE
     Indication: BILE DUCT CANCER
     Route: 042
     Dates: start: 20150210, end: 20150224
  3. GEMCITABINE HYDROCHLORIDE. [Suspect]
     Active Substance: GEMCITABINE HYDROCHLORIDE
     Indication: BILE DUCT CANCER
     Route: 042
     Dates: start: 20150310, end: 20150324

REACTIONS (4)
  - Pneumothorax [Recovering/Resolving]
  - Bronchopleural fistula [Recovering/Resolving]
  - Respiratory failure [Recovering/Resolving]
  - Pulmonary fibrosis [Recovering/Resolving]

NARRATIVE: CASE EVENT DATE: 20150404
